FAERS Safety Report 12839870 (Version 1)
Quarter: 2016Q4

REPORT INFORMATION
  Report Type: Spontaneous
  Country: KR (occurrence: KR)
  Receive Date: 20161012
  Receipt Date: 20161012
  Transmission Date: 20170207
  Serious: Yes (Other)
  Sender: FDA-Public Use
  Company Number: KR-OREXIGEN THERAPEUTICS, INC.-1058262

PATIENT
  Sex: Female

DRUGS (1)
  1. CONTRAVE [Suspect]
     Active Substance: BUPROPION HYDROCHLORIDE\NALTREXONE HYDROCHLORIDE
     Route: 048
     Dates: start: 20160929

REACTIONS (2)
  - Hypoaesthesia [Unknown]
  - Hypoaesthesia [None]

NARRATIVE: CASE EVENT DATE: 20160930
